FAERS Safety Report 15949965 (Version 3)
Quarter: 2019Q4

REPORT INFORMATION
  Report Type: Report from Study
  Country: US (occurrence: US)
  Receive Date: 20190211
  Receipt Date: 20191206
  Transmission Date: 20200122
  Serious: Yes (Life-Threatening, Hospitalization, Other)
  Sender: FDA-Public Use
  Company Number: US-AMGEN-USACT2019012414

PATIENT
  Age: 32 Year
  Sex: Male
  Weight: 105 kg

DRUGS (24)
  1. CYCLOPHOSPHAMIDE. [Suspect]
     Active Substance: CYCLOPHOSPHAMIDE
     Dosage: 650 MG/M2, (DAY 29)
     Route: 042
     Dates: start: 20181029
  2. RITUXIMAB. [Suspect]
     Active Substance: RITUXIMAB
     Indication: B PRECURSOR TYPE ACUTE LEUKAEMIA
     Dosage: 375 MG/M2, UNK
     Route: 042
  3. METHOTREXATE. [Suspect]
     Active Substance: METHOTREXATE
     Dosage: 12.5 MG, ( DAY 1)
     Route: 037
     Dates: start: 20180723
  4. HYDROCORTISONE. [Suspect]
     Active Substance: HYDROCORTISONE
     Indication: B PRECURSOR TYPE ACUTE LEUKAEMIA
     Dosage: 50 MG, UNK
     Route: 037
  5. PEG-L-ASPARAGINASE [Suspect]
     Active Substance: PEGASPARGASE
     Indication: B PRECURSOR TYPE ACUTE LEUKAEMIA
     Dosage: 2000 IU/M2, UNK
     Route: 065
  6. NEULASTA [Concomitant]
     Active Substance: PEGFILGRASTIM
     Route: 065
  7. DAUNORUBICIN [Suspect]
     Active Substance: DAUNORUBICIN
     Indication: B PRECURSOR TYPE ACUTE LEUKAEMIA
     Dosage: 25 MG/M2, (DAYS 1, 8,15,22)
     Route: 042
  8. CYCLOPHOSPHAMIDE. [Suspect]
     Active Substance: CYCLOPHOSPHAMIDE
     Indication: B PRECURSOR TYPE ACUTE LEUKAEMIA
     Dosage: 650 MG/M2, (DAY 29)
     Route: 042
  9. LOVENOX [Concomitant]
     Active Substance: ENOXAPARIN SODIUM
  10. ETOPOSIDE. [Suspect]
     Active Substance: ETOPOSIDE
     Indication: B PRECURSOR TYPE ACUTE LEUKAEMIA
     Dosage: 100 MG/M2, (DAYS 1-5)
     Route: 042
  11. BLINATUMOMAB [Suspect]
     Active Substance: BLINATUMOMAB
     Indication: B PRECURSOR TYPE ACUTE LEUKAEMIA
     Dosage: 28 MUG, UNK
     Route: 042
  12. CYTARABINE. [Suspect]
     Active Substance: CYTARABINE
     Dosage: 75 MG/M2, (SQ OR IV DAYS 1-5 )
     Route: 065
     Dates: start: 20180723
  13. ETOPOSIDE. [Suspect]
     Active Substance: ETOPOSIDE
     Dosage: 100 MG/M2, (DAYS 1-5)
     Route: 042
     Dates: start: 20180723
  14. ONCASPAR [Suspect]
     Active Substance: PEGASPARGASE
     Dosage: 2000 IU/M2, ( IM OR IV DAY 5)
     Route: 042
     Dates: start: 20180727
  15. VINCRISTINE SULFATE. [Suspect]
     Active Substance: VINCRISTINE SULFATE
     Dosage: 1.4 MG/M2, (DAYS 1, 8, 15, 22)
     Route: 042
     Dates: start: 20180917
  16. ONCASPAR [Suspect]
     Active Substance: PEGASPARGASE
     Indication: B PRECURSOR TYPE ACUTE LEUKAEMIA
     Dosage: 2000 IU/M2, ( IM OR IV DAY 5)
     Route: 042
  17. DEXAMETHASONE. [Suspect]
     Active Substance: DEXAMETHASONE
     Indication: B PRECURSOR TYPE ACUTE LEUKAEMIA
     Dosage: 10 MG/M2, (DAYS 1-7, 15-21)
     Route: 065
  18. CYTARABINE. [Suspect]
     Active Substance: CYTARABINE
     Indication: B PRECURSOR TYPE ACUTE LEUKAEMIA
     Dosage: 75 MG/M2, (DAYS 30-33, 37-40)
     Route: 058
  19. METHOTREXATE. [Suspect]
     Active Substance: METHOTREXATE
     Indication: B PRECURSOR TYPE ACUTE LEUKAEMIA
     Dosage: 12.5 MG, ( DAY 1)
     Route: 037
  20. DAUNORUBICIN [Suspect]
     Active Substance: DAUNORUBICIN
     Dosage: 25 MG/M2, (DAYS 1, 8,15,22)
     Route: 042
     Dates: start: 20180917
  21. VINCRISTINE SULFATE. [Suspect]
     Active Substance: VINCRISTINE SULFATE
     Indication: B PRECURSOR TYPE ACUTE LEUKAEMIA
     Dosage: 1.4 MG/M2, (DAYS 1, 8, 15, 22)
     Route: 042
  22. MERCAPTOPURINE. [Suspect]
     Active Substance: MERCAPTOPURINE
     Indication: B PRECURSOR TYPE ACUTE LEUKAEMIA
     Dosage: 60 MG/M2, (DAYS 1-14, 29-42)
     Route: 048
  23. MERCAPTOPURINE. [Suspect]
     Active Substance: MERCAPTOPURINE
     Dosage: 60 MG/M2, (DAYS 1-14, 29-42)
     Route: 048
     Dates: start: 20181029
  24. DEXAMETHASONE. [Suspect]
     Active Substance: DEXAMETHASONE
     Dosage: 10 MG/M2, (DAYS 1-7, 15-21)
     Route: 065
     Dates: start: 20180917

REACTIONS (6)
  - Sinus tachycardia [Recovering/Resolving]
  - Chronic kidney disease [Unknown]
  - Alanine aminotransferase increased [Unknown]
  - Pulmonary oedema [Recovering/Resolving]
  - Hypertension [Unknown]
  - Acute kidney injury [Recovered/Resolved]

NARRATIVE: CASE EVENT DATE: 20190111
